FAERS Safety Report 14526117 (Version 2)
Quarter: 2018Q1

REPORT INFORMATION
  Report Type: Spontaneous
  Country: US (occurrence: US)
  Receive Date: 20180213
  Receipt Date: 20180327
  Transmission Date: 20180509
  Serious: Yes (Hospitalization)
  Sender: FDA-Public Use
  Company Number: US-AUROBINDO-AUR-APL-2018-004787

PATIENT

DRUGS (1)
  1. DULOXETINE DELAYED RELEASE CAPSULES [Suspect]
     Active Substance: DULOXETINE
     Indication: DEPRESSION
     Dosage: 60 MG, DAILY
     Route: 048

REACTIONS (7)
  - Atrial fibrillation [Not Recovered/Not Resolved]
  - Dyspnoea [Unknown]
  - Drug effect incomplete [Unknown]
  - Treatment noncompliance [Unknown]
  - Hyponatraemia [Recovered/Resolved]
  - Wrong technique in product usage process [Unknown]
  - Panic attack [Unknown]

NARRATIVE: CASE EVENT DATE: 20180112
